FAERS Safety Report 7096856-7 (Version None)
Quarter: 2010Q4

REPORT INFORMATION
  Report Type: 
  Country: None (occurrence: None)
  Receive Date: 20101111
  Receipt Date: 20091216
  Transmission Date: 20110411
  Serious: No
  Sender: FDA-Public Use
  Company Number: US-KINGPHARMUSA00001-K200901561

PATIENT
  Age: 58 Year
  Sex: Female
  Weight: 77.098 kg

DRUGS (3)
  1. FLECTOR [Suspect]
     Indication: BACK PAIN
     Dosage: 2 PATCH, PRN
     Route: 061
     Dates: start: 20091201, end: 20091215
  2. FLECTOR [Suspect]
     Indication: NEURALGIA
  3. MICARDIS [Concomitant]
     Indication: HYPERTENSION
     Dosage: 60 MG, QD

REACTIONS (2)
  - DRUG INEFFECTIVE [None]
  - JOINT SWELLING [None]
